FAERS Safety Report 7830565-9 (Version None)
Quarter: 2011Q4

REPORT INFORMATION
  Report Type: 
  Country: None (occurrence: None)
  Receive Date: 20111021
  Receipt Date: 20111017
  Transmission Date: 20120403
  Serious: Yes (Other)
  Sender: FDA-Public Use
  Company Number: US-PFIZER INC-2011248620

PATIENT
  Age: 50 Year
  Sex: Female

DRUGS (2)
  1. PRISTIQ [Suspect]
     Indication: DEPRESSION
     Dosage: UNK
     Dates: start: 20100101
  2. SAVELLA [Suspect]
     Dosage: UNK
     Dates: start: 20100101

REACTIONS (2)
  - HEPATIC STEATOSIS [None]
  - HEPATITIS ACUTE [None]
